FAERS Safety Report 4336214-9 (Version None)
Quarter: 2004Q2

REPORT INFORMATION
  Report Type: 
  Country: None (occurrence: None)
  Receive Date: 20040406
  Receipt Date: 20040324
  Transmission Date: 20050107
  Serious: No
  Sender: FDA-Public Use
  Company Number: 2004AP00724

PATIENT
  Age: 46 Year
  Sex: Male
  Weight: 55 kg

DRUGS (2)
  1. XYLOCAINE [Suspect]
     Indication: INFILTRATION ANAESTHESIA
     Dosage: 40 MG
     Dates: start: 20040129, end: 20040129
  2. CEFZON [Concomitant]

REACTIONS (4)
  - FEELING ABNORMAL [None]
  - PAIN [None]
  - RESPIRATORY DEPRESSION [None]
  - SHOCK [None]
